FAERS Safety Report 4311279-9 (Version None)
Quarter: 2004Q1

REPORT INFORMATION
  Report Type: 
  Country: None (occurrence: None)
  Receive Date: 20040304
  Receipt Date: 20031029
  Transmission Date: 20041129
  Serious: Yes (Other)
  Sender: FDA-Public Use
  Company Number: US-GLAXOSMITHKLINE-A0433343A

PATIENT
  Age: 2 Year
  Sex: Female

DRUGS (4)
  1. AVANDIA [Suspect]
     Indication: ACCIDENTAL EXPOSURE
     Route: 048
  2. WELLBUTRIN [Suspect]
     Indication: ACCIDENTAL EXPOSURE
     Route: 048
  3. METFORMIN [Suspect]
     Indication: ACCIDENTAL EXPOSURE
     Route: 048
  4. LIPITOR [Suspect]
     Indication: ACCIDENTAL EXPOSURE
     Route: 048

REACTIONS (2)
  - ACCIDENTAL EXPOSURE [None]
  - CONVULSION [None]
